FAERS Safety Report 15607436 (Version 1)
Quarter: 2018Q4

REPORT INFORMATION
  Report Type: Report from Study
  Country: FR (occurrence: FR)
  Receive Date: 20181112
  Receipt Date: 20181112
  Transmission Date: 20190205
  Serious: Yes (Death, Other)
  Sender: FDA-Public Use
  Company Number: FR-MYLANLABS-2018M1084549

PATIENT
  Age: 9 Decade
  Sex: Female

DRUGS (4)
  1. FLUDARABINE [Suspect]
     Active Substance: FLUDARABINE PHOSPHATE
     Indication: CRYOGLOBULINAEMIA
     Dosage: RECEIVED SEVEN CYCLES OF RITUXIMAB-FLUDARABINE CHEMOTHERAPY
     Route: 065
     Dates: end: 201309
  2. IDELALISIB [Suspect]
     Active Substance: IDELALISIB
     Indication: CRYOGLOBULINAEMIA
     Route: 065
     Dates: start: 201312
  3. RITUXIMAB. [Suspect]
     Active Substance: RITUXIMAB
     Indication: CRYOGLOBULINAEMIA
     Dosage: RECEIVED SEVEN CYCLES OF RITUXIMAB-FLUDARABINE CHEMOTHERAPY
     Route: 065
     Dates: end: 201309
  4. CYCLOPHOSPHAMIDE. [Suspect]
     Active Substance: CYCLOPHOSPHAMIDE
     Indication: CRYOGLOBULINAEMIA
     Dosage: RECEIVED SIX CYCLES OF IV CYCLOPHOSPHAMIDE WEEKLY
     Route: 042
     Dates: start: 2011

REACTIONS (1)
  - Drug ineffective [Unknown]
